FAERS Safety Report 20741138 (Version 1)
Quarter: 2022Q2

REPORT INFORMATION
  Report Type: Spontaneous
  Country: US (occurrence: US)
  Receive Date: 20220422
  Receipt Date: 20220422
  Transmission Date: 20220720
  Serious: No
  Sender: FDA-Public Use
  Company Number: US-PFIZER INC-2021703798

PATIENT

DRUGS (2)
  1. LYRICA [Suspect]
     Active Substance: PREGABALIN
     Indication: Neuropathy peripheral
     Dosage: 25 MG (LOW INTRODUCTORY DOSE)
  2. LYRICA [Suspect]
     Active Substance: PREGABALIN
     Indication: Generalised anxiety disorder

REACTIONS (5)
  - Drug ineffective [Unknown]
  - Insomnia [Unknown]
  - Nightmare [Unknown]
  - Diarrhoea [Unknown]
  - Tremor [Unknown]
